FAERS Safety Report 7799796 (Version 3)
Quarter: 2012Q4

REPORT INFORMATION
  Report Type: 
  Country: US (occurrence: US)
  Receive Date: 20110204
  Receipt Date: 20121206
  Transmission Date: 20130627
  Serious: No
  Sender: FDA-Public Use
  Company Number: US-B.I. PHARMACEUTICALS,INC./RIDGEFIELD-2011-BP-01951BP

PATIENT
  Age: 87 None
  Sex: Male

DRUGS (6)
  1. SPIRIVA HANDIHALER [Suspect]
     Indication: CHRONIC OBSTRUCTIVE PULMONARY DISEASE
     Route: 055
     Dates: start: 2007
  2. SPIRIVA HANDIHALER [Suspect]
     Dosage: 18 mcg
     Route: 055
     Dates: start: 201012, end: 20121201
  3. SIMVASTATIN [Concomitant]
     Indication: BLOOD CHOLESTEROL INCREASED
     Dates: start: 2008
  4. LISINOPRIL [Concomitant]
     Indication: HYPERTENSION
     Route: 048
  5. FINASTERIDE [Concomitant]
     Indication: DYSURIA
     Dosage: 5 mg
     Route: 048
     Dates: start: 2009
  6. FOLIC ACID [Concomitant]
     Indication: SUPPLEMENTATION THERAPY
     Dosage: 20 mg
     Route: 048
     Dates: start: 2002

REACTIONS (12)
  - Pain in extremity [Not Recovered/Not Resolved]
  - Oropharyngeal pain [Recovered/Resolved]
  - Muscular weakness [Recovered/Resolved]
  - Rash [Not Recovered/Not Resolved]
  - Rash papular [Not Recovered/Not Resolved]
  - Herpes zoster [Recovered/Resolved]
  - Pruritus [Not Recovered/Not Resolved]
  - Fall [Recovered/Resolved]
  - Abnormal loss of weight [Not Recovered/Not Resolved]
  - Spinal compression fracture [Recovered/Resolved]
  - Pruritus [Not Recovered/Not Resolved]
  - Alopecia [Unknown]
